FAERS Safety Report 6588988-4 (Version None)
Quarter: 2010Q1

REPORT INFORMATION
  Report Type: 
  Country: None (occurrence: None)
  Receive Date: 20100218
  Receipt Date: 20100209
  Transmission Date: 20100710
  Serious: Yes (Death)
  Sender: FDA-Public Use
  Company Number: US-ROXANE LABORATORIES, INC.-2010-DE-00756GD

PATIENT
  Age: 50 Year
  Sex: Female

DRUGS (8)
  1. MORPHINE SULFATE [Suspect]
     Route: 048
  2. SERTRALINE HCL [Suspect]
     Route: 048
  3. ACETAMINOPHEN W/ PROPOXYPHENE HCL [Suspect]
     Route: 048
  4. MEPROBAMATE [Suspect]
     Route: 048
  5. HYDROMORPHONE HYDROCHLORIDE [Suspect]
     Route: 048
  6. ALPRAZOLAM [Suspect]
     Route: 048
  7. HYDROCODONE BITARTRATE AND ACETAMINOPHEN [Suspect]
     Route: 048
  8. DIPHENHYDRAMINE [Suspect]
     Route: 048

REACTIONS (1)
  - DEATH [None]
